FAERS Safety Report 8060737-2 (Version None)
Quarter: 2012Q1

REPORT INFORMATION
  Report Type: 
  Country: None (occurrence: None)
  Receive Date: 20120120
  Receipt Date: 20120106
  Transmission Date: 20120608
  Serious: Yes (Other)
  Sender: FDA-Public Use
  Company Number: US-WATSON-2012-00277

PATIENT
  Sex: Female

DRUGS (3)
  1. PROPOXYPHENE HCL AND ACETAMINOPHEN [Suspect]
     Indication: PAIN MANAGEMENT
     Dosage: UNK
     Route: 065
  2. DARVOCET [Suspect]
     Indication: PAIN MANAGEMENT
     Dosage: UNK
     Route: 065
  3. DARVON [Suspect]
     Indication: PAIN MANAGEMENT
     Dosage: UNK
     Route: 065

REACTIONS (9)
  - DECREASED APPETITE [None]
  - CONFUSIONAL STATE [None]
  - HEADACHE [None]
  - ABDOMINAL PAIN UPPER [None]
  - CHEST PAIN [None]
  - ABNORMAL BEHAVIOUR [None]
  - DIZZINESS [None]
  - SOMNOLENCE [None]
  - THINKING ABNORMAL [None]
